FAERS Safety Report 24332827 (Version 1)
Quarter: 2024Q3

REPORT INFORMATION
  Report Type: Spontaneous
  Country: US (occurrence: US)
  Receive Date: 20240918
  Receipt Date: 20240918
  Transmission Date: 20241016
  Serious: Yes (Other)
  Sender: BIOCODEX
  Company Number: US-BIOCODEX2-2024001262

PATIENT
  Age: 3 Year
  Sex: Female
  Weight: 14.6 kg

DRUGS (1)
  1. DIACOMIT [Suspect]
     Active Substance: STIRIPENTOL
     Indication: Severe myoclonic epilepsy of infancy
     Dosage: 125MG AND 250MG IN TWO SEPARATE DOSES EACH DAY
     Route: 048
     Dates: start: 20240712

REACTIONS (1)
  - Change in seizure presentation [Unknown]
